FAERS Safety Report 8582260-9 (Version None)
Quarter: 2012Q3

REPORT INFORMATION
  Report Type: 
  Country: None (occurrence: None)
  Receive Date: 20120727
  Receipt Date: 20120718
  Transmission Date: 20120928
  Serious: Yes (Life-Threatening, Hospitalization)
  Sender: FDA-Public Use
  Company Number: AUR-APL-2012-03103

PATIENT
  Age: 70 Year
  Sex: Male

DRUGS (8)
  1. FLUCONAZOLE [Suspect]
     Indication: ORAL CANDIDIASIS
     Dosage: 50 MG (50 MG, 1 IN 1 D), ORAL
     Route: 048
     Dates: start: 20120517, end: 20120518
  2. ACETAMINOPHEN [Concomitant]
  3. BISOPROLOL FUMARATE [Concomitant]
  4. LISINOPRIL [Concomitant]
  5. RANITIDINE HYDROCHLORIDE [Concomitant]
  6. METOCLOPRAMIDE [Concomitant]
  7. OMEPRAZOLE [Concomitant]
  8. FUROSEMIDE [Concomitant]

REACTIONS (3)
  - APPARENT LIFE THREATENING EVENT [None]
  - RENAL FAILURE ACUTE [None]
  - HAEMODIALYSIS [None]
